FAERS Safety Report 10273833 (Version 1)
Quarter: 2014Q3

REPORT INFORMATION
  Report Type: Spontaneous
  Country: RU (occurrence: RU)
  Receive Date: 20140702
  Receipt Date: 20140702
  Transmission Date: 20150326
  Serious: Yes (Other)
  Sender: FDA-Public Use
  Company Number: RU-BAYER-2014-093804

PATIENT
  Sex: Female

DRUGS (2)
  1. NEXAVAR [Suspect]
     Active Substance: SORAFENIB
     Indication: HEPATOCELLULAR CARCINOMA
     Dosage: 800 MG DAILY
     Route: 048
     Dates: start: 201011
  2. DOXORUBICIN [Concomitant]
     Active Substance: DOXORUBICIN
     Dosage: 50 MG

REACTIONS (10)
  - Portal hypertension [None]
  - Hepatosplenomegaly [None]
  - Blood pressure increased [None]
  - Nausea [None]
  - Hepatic cyst [None]
  - Hepatic cyst [None]
  - Oedema [None]
  - Hepatic cirrhosis [None]
  - Metastases to liver [None]
  - Palmar-plantar erythrodysaesthesia syndrome [None]

NARRATIVE: CASE EVENT DATE: 201103
